FAERS Safety Report 23577374 (Version 1)
Quarter: 2024Q1

REPORT INFORMATION
  Report Type: Spontaneous
  Country: US (occurrence: US)
  Receive Date: 20240228
  Receipt Date: 20240228
  Transmission Date: 20240410
  Serious: Yes (Hospitalization)
  Sender: FDA-Public Use
  Company Number: US-CYCLE PHARMACEUTICALS LTD-2024-CYC-000029

PATIENT

DRUGS (1)
  1. NITYR [Suspect]
     Active Substance: NITISINONE
     Indication: Tyrosinaemia
     Dosage: 6 MG, QD
     Route: 048
     Dates: start: 20230810

REACTIONS (3)
  - Decreased appetite [Unknown]
  - Crying [Unknown]
  - Food refusal [Unknown]

NARRATIVE: CASE EVENT DATE: 20240217
